FAERS Safety Report 18067478 (Version 1)
Quarter: 2020Q3

REPORT INFORMATION
  Report Type: Spontaneous
  Country: FR (occurrence: FR)
  Receive Date: 20200724
  Receipt Date: 20200724
  Transmission Date: 20201103
  Serious: Yes (Other)
  Sender: FDA-Public Use
  Company Number: NVSC2020FR203472

PATIENT
  Age: 75 Year
  Sex: Male

DRUGS (3)
  1. VELCADE [Suspect]
     Active Substance: BORTEZOMIB
     Indication: PLASMA CELL MYELOMA
     Dosage: 2 DF, BIW
     Route: 065
     Dates: end: 20180808
  2. PREDNISONE. [Suspect]
     Active Substance: PREDNISONE
     Indication: PLASMA CELL MYELOMA
     Dosage: 4 DF, QW
     Route: 065
     Dates: end: 20180808
  3. MELPHALAN. [Suspect]
     Active Substance: MELPHALAN
     Indication: PLASMA CELL MYELOMA
     Dosage: 4 DF, QD
     Route: 065
     Dates: end: 20180808

REACTIONS (3)
  - Intentional product misuse [Unknown]
  - Peripheral sensory neuropathy [Unknown]
  - Off label use [Unknown]
